FAERS Safety Report 8413518 (Version 4)
Quarter: 2013Q2

REPORT INFORMATION
  Report Type: Spontaneous
  Country: US (occurrence: US)
  Receive Date: 20120217
  Receipt Date: 20130502
  Transmission Date: 20140414
  Serious: Yes (Hospitalization, Other)
  Sender: FDA-Public Use
  Company Number: US-ASTRAZENECA-2010SE36882

PATIENT
  Age: 79 Year
  Sex: Female
  Weight: 54.4 kg

DRUGS (12)
  1. NEXIUM [Suspect]
     Route: 048
  2. PRILOSEC OTC [Suspect]
     Route: 048
  3. PRILOSEC [Suspect]
     Route: 048
  4. ASPIRIN [Concomitant]
  5. CLONIDINE HCL [Concomitant]
  6. MEPROBAMATE [Concomitant]
  7. MEPROBAMATE [Concomitant]
  8. SIMVASTATIN [Concomitant]
  9. TRIAMTERENE HCTZ [Concomitant]
     Dosage: 37.5-25 MG DAILY
  10. VICODIN ES [Concomitant]
     Dosage: 7.5-750 MG, FOUR TIMES A DAY, AS REQUIRED
  11. AMLODIPINE BESYLATE [Concomitant]
  12. ATENOLOL [Concomitant]

REACTIONS (26)
  - Rib fracture [Unknown]
  - Spinal fracture [Unknown]
  - Road traffic accident [Unknown]
  - Central nervous system inflammation [Unknown]
  - Dysphagia [Unknown]
  - Influenza [Unknown]
  - Pain [Unknown]
  - Back pain [Unknown]
  - Chest pain [Unknown]
  - Cough [Unknown]
  - Pulmonary congestion [Unknown]
  - Neck pain [Unknown]
  - Chronic obstructive pulmonary disease [Unknown]
  - Coronary artery disease [Unknown]
  - Essential hypertension [Unknown]
  - Neuritis [Unknown]
  - Spinal disorder [Unknown]
  - Muscle spasms [Unknown]
  - Decreased appetite [Unknown]
  - Costochondritis [Unknown]
  - Oesophageal food impaction [Unknown]
  - Headache [Unknown]
  - Malaise [Unknown]
  - Vomiting [Unknown]
  - Drug dose omission [Unknown]
  - Drug ineffective [Unknown]
